FAERS Safety Report 16840510 (Version 3)
Quarter: 2019Q4

REPORT INFORMATION
  Report Type: Report from Study
  Country: FR (occurrence: FR)
  Receive Date: 20190923
  Receipt Date: 20191001
  Transmission Date: 20200122
  Serious: Yes (Life-Threatening, Hospitalization, Other)
  Sender: FDA-Public Use
  Company Number: PHHY2018FR156835

PATIENT
  Age: 21 Year
  Sex: Male
  Weight: 46 kg

DRUGS (1)
  1. TISAGENLECLEUCEL. [Suspect]
     Active Substance: TISAGENLECLEUCEL
     Indication: ACUTE LYMPHOCYTIC LEUKAEMIA
     Dosage: 3.653 X 10^6 CAR+ VIABLE T-CELLS, ONCE/SINGLE
     Route: 042
     Dates: start: 20181008

REACTIONS (15)
  - CAR T-cell-related encephalopathy syndrome [Recovered/Resolved]
  - Bronchopulmonary aspergillosis [Recovered/Resolved]
  - Generalised tonic-clonic seizure [Unknown]
  - Hypogammaglobulinaemia [Recovering/Resolving]
  - Febrile neutropenia [Unknown]
  - Pneumonia [Unknown]
  - Lymphocyte count decreased [Unknown]
  - Neurological symptom [Recovered/Resolved]
  - Seizure [Unknown]
  - Haemophagocytic lymphohistiocytosis [Recovered/Resolved]
  - Cytokine release syndrome [Recovered/Resolved]
  - Pyrexia [Recovered/Resolved]
  - Pleural effusion [Unknown]
  - Blood pressure decreased [Unknown]
  - Serum ferritin increased [Unknown]

NARRATIVE: CASE EVENT DATE: 20181008
